FAERS Safety Report 7826462-5 (Version None)
Quarter: 2011Q3

REPORT INFORMATION
  Report Type: 
  Country: None (occurrence: None)
  Receive Date: 20110901
  Receipt Date: 20110309
  Transmission Date: 20111222
  Serious: Yes (Hospitalization, Other)
  Sender: FDA-Public Use
  Company Number: 270495USA

PATIENT
  Sex: Female

DRUGS (1)
  1. METOCLOPRAMIDE [Suspect]

REACTIONS (16)
  - HEADACHE [None]
  - DRY EYE [None]
  - LOGORRHOEA [None]
  - MOOD ALTERED [None]
  - DEPRESSION [None]
  - DYSGRAPHIA [None]
  - URINE OUTPUT INCREASED [None]
  - EXCESSIVE EYE BLINKING [None]
  - GAIT DISTURBANCE [None]
  - FLUID RETENTION [None]
  - MASTICATION DISORDER [None]
  - TREMOR [None]
  - MUSCULOSKELETAL STIFFNESS [None]
  - TARDIVE DYSKINESIA [None]
  - FALL [None]
  - HALLUCINATION [None]
